FAERS Safety Report 6125458-1 (Version None)
Quarter: 2009Q1

REPORT INFORMATION
  Report Type: 
  Country: None (occurrence: None)
  Receive Date: 20090320
  Receipt Date: 20090311
  Transmission Date: 20090719
  Serious: Yes (Hospitalization, Other)
  Sender: FDA-Public Use
  Company Number: PHHY2009JP05172

PATIENT
  Sex: Male

DRUGS (3)
  1. FAMVIR [Suspect]
     Indication: HERPES ZOSTER
     Dosage: 500 MG, TID
     Route: 048
     Dates: start: 20090130, end: 20090202
  2. VOLTAREN [Suspect]
     Indication: HERPES ZOSTER
     Dosage: UNK
     Route: 054
  3. IRINATOLON [Suspect]
     Indication: HERPES ZOSTER
     Dosage: UNK
     Route: 048
     Dates: start: 20090129, end: 20090201

REACTIONS (10)
  - CONDITION AGGRAVATED [None]
  - CRANIAL NERVE PALSIES MULTIPLE [None]
  - ERYTHEMA [None]
  - HEADACHE [None]
  - HEPATIC FUNCTION ABNORMAL [None]
  - HERPES ZOSTER [None]
  - LOSS OF CONSCIOUSNESS [None]
  - PAIN [None]
  - PYREXIA [None]
  - RASH GENERALISED [None]
